FAERS Safety Report 5352878-5 (Version None)
Quarter: 2007Q2

REPORT INFORMATION
  Report Type: 
  Country: None (occurrence: None)
  Receive Date: 20070518
  Receipt Date: 20070413
  Transmission Date: 20071010
  Serious: No
  Sender: FDA-Public Use
  Company Number: TPA2007A00796

PATIENT
  Age: 51 Year
  Sex: Female
  Weight: 108.8633 kg

DRUGS (9)
  1. ROZEREM [Suspect]
     Indication: INITIAL INSOMNIA
     Dosage: 8 MG, HS, PER ORAL
     Route: 048
     Dates: start: 20070412
  2. DEMADEX [Concomitant]
  3. NEXIUM [Concomitant]
  4. CYMBALTA [Concomitant]
  5. REGLAN [Concomitant]
  6. PERCOCET [Concomitant]
  7. NORVASC [Concomitant]
  8. HUMALOG [Concomitant]
  9. PROVIGIL [Concomitant]

REACTIONS (3)
  - DRUG INEFFECTIVE [None]
  - INITIAL INSOMNIA [None]
  - POOR QUALITY SLEEP [None]
